FAERS Safety Report 5524501-8 (Version None)
Quarter: 2007Q4

REPORT INFORMATION
  Report Type: 
  Country: None (occurrence: None)
  Receive Date: 20071122
  Receipt Date: 20071115
  Transmission Date: 20080405
  Serious: Yes (Other)
  Sender: FDA-Public Use
  Company Number: PHEH2007US14917

PATIENT

DRUGS (1)
  1. SANDOSTATIN [Suspect]

REACTIONS (1)
  - MEGACOLON [None]
